FAERS Safety Report 6293147-9 (Version None)
Quarter: 2009Q3

REPORT INFORMATION
  Report Type: 
  Country: None (occurrence: None)
  Receive Date: 20090731
  Receipt Date: 20090721
  Transmission Date: 20100115
  Serious: Yes (Other)
  Sender: FDA-Public Use
  Company Number: US-SANOFI-SYNTHELABO-A03200903189

PATIENT
  Age: 24 Year
  Sex: Female

DRUGS (4)
  1. AMBIEN [Suspect]
     Indication: DRUG USE FOR UNKNOWN INDICATION
     Dosage: UNK
     Route: 048
  2. ECSTASY [Suspect]
     Indication: DRUG USE FOR UNKNOWN INDICATION
     Dosage: UNK
     Route: 065
  3. PCP [Suspect]
     Indication: DRUG USE FOR UNKNOWN INDICATION
     Dosage: UNK
     Route: 065
  4. MARIJUANA [Suspect]
     Indication: DRUG USE FOR UNKNOWN INDICATION
     Dosage: UNK
     Route: 055

REACTIONS (4)
  - ABNORMAL BEHAVIOUR [None]
  - COGNITIVE DISORDER [None]
  - PHYSICAL ASSAULT [None]
  - SUBSTANCE ABUSE [None]
